FAERS Safety Report 16314482 (Version 3)
Quarter: 2020Q2

REPORT INFORMATION
  Report Type: Spontaneous
  Country: PT (occurrence: PT)
  Receive Date: 20190515
  Receipt Date: 20200522
  Transmission Date: 20200713
  Serious: Yes (Other)
  Sender: FDA-Public Use
  Company Number: PT-MYLANLABS-2019M1046258

PATIENT
  Age: 86 Year
  Sex: Female

DRUGS (9)
  1. BENDALINE [Concomitant]
     Indication: CATARACT
     Dosage: 1 DOSAGE FORM, QD
     Route: 048
  2. SINGULAIR [Concomitant]
     Active Substance: MONTELUKAST SODIUM
     Indication: HYPERSENSITIVITY
     Dosage: 1 DOSAGE FORM, QD
     Route: 048
  3. FOSAVANCE [Concomitant]
     Active Substance: ALENDRONATE SODIUM\CHOLECALCIFEROL
     Indication: OSTEOPOROSIS
     Dosage: 1 DOSAGE FORM, QW
     Route: 048
  4. TRIMETAZIDINA MYLAN [Concomitant]
     Active Substance: TRIMETAZIDINE
     Indication: ANGINA PECTORIS
     Dosage: 2 DOSAGE FORM, QD
     Route: 048
  5. REFRESH CELLUVISC [Concomitant]
     Active Substance: CARBOXYMETHYLCELLULOSE SODIUM
     Indication: DRY EYE
     Dosage: 2 GTT DROPS, QD
  6. MICARDIS [Concomitant]
     Active Substance: TELMISARTAN
     Indication: HYPERTENSION
     Dosage: 1 DOSAGE FORM, QD
     Route: 048
  7. ISOPTIN DC, 120 MG, COMPRIMIDO DE LIBERTA??O PROLONGADA. [Suspect]
     Active Substance: VERAPAMIL HYDROCHLORIDE
     Indication: HYPERTENSION
     Dosage: 1 DOSAGE FORM, QD (IN MORNING)
     Route: 048
     Dates: start: 201904
  8. OCULOTECT                          /00056002/ [Concomitant]
     Indication: DRY EYE
     Dosage: UNK, QD (SEVERAL TIMES)
  9. BILOBAN [Concomitant]
     Indication: DEMENTIA
     Dosage: 2 DOSAGE FORM, QD
     Route: 048

REACTIONS (6)
  - Blood pressure increased [Not Recovered/Not Resolved]
  - Product odour abnormal [Unknown]
  - Headache [Recovered/Resolved]
  - Taste disorder [Unknown]
  - Malaise [Recovered/Resolved]
  - Product dose omission [Not Recovered/Not Resolved]

NARRATIVE: CASE EVENT DATE: 2019
